FAERS Safety Report 17462522 (Version 1)
Quarter: 2020Q1

REPORT INFORMATION
  Report Type: Spontaneous
  Country: US (occurrence: US)
  Receive Date: 20200226
  Receipt Date: 20200226
  Transmission Date: 20200409
  Serious: Yes (Hospitalization)
  Sender: FDA-Public Use
  Company Number: None

PATIENT
  Age: 86 Year
  Sex: Female

DRUGS (12)
  1. MULTI [Concomitant]
  2. VITAMIN D3 [Concomitant]
     Active Substance: CHOLECALCIFEROL
  3. CARTIA [Concomitant]
  4. FISH OIL [Concomitant]
     Active Substance: FISH OIL
  5. WARFARIN [Concomitant]
     Active Substance: WARFARIN
  6. FOLIC ACID. [Concomitant]
     Active Substance: FOLIC ACID
  7. TORSEMIDE. [Concomitant]
     Active Substance: TORSEMIDE
  8. FENOFIBRATE. [Concomitant]
     Active Substance: FENOFIBRATE
  9. SIMVASTATIN. [Concomitant]
     Active Substance: SIMVASTATIN
  10. FISH OIL [Concomitant]
     Active Substance: FISH OIL
  11. IMATINIB. [Suspect]
     Active Substance: IMATINIB MESYLATE
     Indication: CHRONIC MYELOID LEUKAEMIA
     Route: 048
     Dates: start: 20160304
  12. HYOSCYEMINE [Concomitant]

REACTIONS (1)
  - Myocardial infarction [None]

NARRATIVE: CASE EVENT DATE: 20191201
